FAERS Safety Report 4379927-5 (Version None)
Quarter: 2004Q2

REPORT INFORMATION
  Report Type: 
  Country: None (occurrence: None)
  Receive Date: 20040614
  Receipt Date: 20040604
  Transmission Date: 20050107
  Serious: Yes (Hospitalization)
  Sender: FDA-Public Use
  Company Number: 2004-06-0212

PATIENT
  Age: 86 Year
  Sex: Female

DRUGS (3)
  1. GENTAMICIN SULFATE [Suspect]
     Indication: KNEE ARTHROPLASTY
     Dosage: 160 MG QD INTRAVENOUS
     Route: 042
     Dates: start: 20040310, end: 20040314
  2. ORBENIN CAP [Suspect]
     Indication: KNEE ARTHROPLASTY
     Dosage: 1G QD INTRAVENOUS
     Route: 042
     Dates: start: 20040310, end: 20040316
  3. KETOPROFEN [Suspect]
     Indication: KNEE ARTHROPLASTY
     Dosage: 300 MG QD INTRAVENOUS
     Route: 042
     Dates: start: 20040310, end: 20040313

REACTIONS (4)
  - ANURIA [None]
  - BLOOD POTASSIUM INCREASED [None]
  - RENAL FAILURE ACUTE [None]
  - RENAL TUBULAR NECROSIS [None]
